FAERS Safety Report 9689974 (Version 2)
Quarter: 2019Q4

REPORT INFORMATION
  Report Type: Spontaneous
  Country: US (occurrence: US)
  Receive Date: 20131115
  Receipt Date: 20191017
  Transmission Date: 20200122
  Serious: No
  Sender: FDA-Public Use
  Company Number: US-PFIZER INC-2013322674

PATIENT
  Age: 68 Year
  Sex: Female
  Weight: 52.15 kg

DRUGS (2)
  1. XALATAN [Suspect]
     Active Substance: LATANOPROST
     Dosage: 1 GTT, 1X/DAY (1 DROP INTO BOTH EYES NIGHTLY/125 MCG FOR A 90 DAY SUPPL)
     Route: 047
  2. XALATAN [Suspect]
     Active Substance: LATANOPROST
     Indication: OPEN ANGLE GLAUCOMA
     Dosage: UNK

REACTIONS (1)
  - Hypoacusis [Unknown]
